FAERS Safety Report 10265190 (Version 5)
Quarter: 2014Q4

REPORT INFORMATION
  Report Type: Report from Study
  Country: CA (occurrence: CA)
  Receive Date: 20140627
  Receipt Date: 20141014
  Transmission Date: 20150528
  Serious: Yes (Other)
  Sender: FDA-Public Use
  Company Number: CA-ALEXION PHARMACEUTICALS INC.-A201400012

PATIENT

DRUGS (13)
  1. SOLIRIS [Suspect]
     Active Substance: ECULIZUMAB
     Dosage: 900 MG, Q2W
     Route: 042
     Dates: start: 20111222
  2. SOLIRIS [Suspect]
     Active Substance: ECULIZUMAB
     Dosage: 900 MG, Q2W
     Route: 042
     Dates: start: 20111222
  3. ACIDOPHILUS PROBIOTIC [Concomitant]
     Indication: PRODUCT USED FOR UNKNOWN INDICATION
     Dosage: 1 TABLET, QD
     Route: 048
  4. BEXSERO [Suspect]
     Active Substance: MENINGOCOCCAL GROUP B VACCINE
     Indication: IMMUNISATION
     Dosage: 0.5 ML, SINGLE
     Route: 030
     Dates: start: 20140513, end: 20140513
  5. WOMEN^S MULTIVITAMIN [Concomitant]
     Indication: PRODUCT USED FOR UNKNOWN INDICATION
     Dosage: 1 DF, QD
     Route: 048
  6. METRONIDAZOLE. [Concomitant]
     Active Substance: METRONIDAZOLE
     Indication: PRODUCT USED FOR UNKNOWN INDICATION
     Dosage: 14 DAY COURSE
     Route: 048
     Dates: start: 201310, end: 201310
  7. SOLIRIS [Suspect]
     Active Substance: ECULIZUMAB
     Indication: PAROXYSMAL NOCTURNAL HAEMOGLOBINURIA
     Dosage: 600 MG, QW
     Route: 042
     Dates: start: 20111124, end: 20111215
  8. SOLIRIS [Suspect]
     Active Substance: ECULIZUMAB
     Dosage: 900 MG, Q2W
     Route: 042
     Dates: start: 20111222
  9. SOLIRIS [Suspect]
     Active Substance: ECULIZUMAB
     Dosage: 900 MG, Q2W
     Route: 042
     Dates: start: 20111222
  10. BEXSERO [Suspect]
     Active Substance: MENINGOCOCCAL GROUP B VACCINE
     Dosage: 0.5 ML, SINGLE
     Route: 030
     Dates: start: 20140610, end: 20140610
  11. PREDNISONE. [Concomitant]
     Active Substance: PREDNISONE
     Indication: HAEMOLYSIS
     Dosage: 25-50MG PRN
     Route: 048
  12. AMOXICILLIN. [Concomitant]
     Active Substance: AMOXICILLIN
     Indication: PROPHYLAXIS
     Dosage: 500 MG, BID
     Route: 048
     Dates: start: 2013
  13. VITAMIN D [Concomitant]
     Active Substance: CHOLECALCIFEROL
     Indication: PRODUCT USED FOR UNKNOWN INDICATION
     Dosage: 1000 IU, QD
     Route: 048

REACTIONS (26)
  - Asthenia [Unknown]
  - Vomiting [Recovered/Resolved]
  - Myalgia [Unknown]
  - Headache [Recovered/Resolved]
  - Injection site reaction [Unknown]
  - Haemoglobinuria [Recovered/Resolved]
  - Oropharyngeal pain [Recovered/Resolved]
  - Dizziness [Recovered/Resolved]
  - Pain [Not Recovered/Not Resolved]
  - Malaise [Recovered/Resolved]
  - Injection site swelling [Recovered/Resolved]
  - Pyrexia [Recovered/Resolved]
  - Dizziness [Recovered/Resolved]
  - Nasopharyngitis [Not Recovered/Not Resolved]
  - Rhabdomyolysis [Unknown]
  - Sinusitis [Not Recovered/Not Resolved]
  - Pain in extremity [Recovered/Resolved]
  - Headache [Recovered/Resolved]
  - Pyrexia [Recovered/Resolved]
  - Influenza like illness [Unknown]
  - Back pain [Not Recovered/Not Resolved]
  - Fatigue [Not Recovered/Not Resolved]
  - Ocular icterus [Not Recovered/Not Resolved]
  - Chills [Recovered/Resolved]
  - Abdominal pain [Not Recovered/Not Resolved]
  - Malaise [Recovered/Resolved]

NARRATIVE: CASE EVENT DATE: 20130708
